FAERS Safety Report 4409709-7 (Version None)
Quarter: 2004Q3

REPORT INFORMATION
  Report Type: 
  Country: None (occurrence: None)
  Receive Date: 20040727
  Receipt Date: 20040727
  Transmission Date: 20050211
  Serious: No
  Sender: FDA-Public Use
  Company Number: None

PATIENT
  Age: 45 Year
  Sex: Female

DRUGS (2)
  1. GAMMAGARD [Suspect]
     Indication: HYPOGAMMAGLOBULINAEMIA
     Dosage: 25 GM IV Q MONTH
     Route: 042
     Dates: start: 20040226, end: 20040713
  2. GAMMAGARD [Suspect]

REACTIONS (2)
  - INFUSION RELATED REACTION [None]
  - SENSORY DISTURBANCE [None]
